FAERS Safety Report 22161480 (Version 2)
Quarter: 2023Q2

REPORT INFORMATION
  Report Type: Spontaneous
  Country: US (occurrence: US)
  Receive Date: 20230331
  Receipt Date: 20230530
  Transmission Date: 20230722
  Serious: Yes (Life-Threatening)
  Sender: FDA-Public Use
  Company Number: US-PFIZER INC-PV202300058467

PATIENT
  Age: 67 Year
  Sex: Female

DRUGS (1)
  1. ZIRABEV [Suspect]
     Active Substance: BEVACIZUMAB-BVZR
     Dosage: 25 MG/ML (100MG/4ML, 400MG/16ML Q(EVERY) 2 WEEK DOSING)

REACTIONS (1)
  - Colon cancer [Unknown]
